FAERS Safety Report 5797151-6 (Version None)
Quarter: 2008Q2

REPORT INFORMATION
  Report Type: 
  Country: None (occurrence: None)
  Receive Date: 20080618
  Receipt Date: 20071010
  Transmission Date: 20081010
  Serious: Yes (Other)
  Sender: FDA-Public Use
  Company Number: 200717133US

PATIENT
  Age: 78 Year
  Sex: Male

DRUGS (6)
  1. LANTUS [Suspect]
     Indication: TYPE 1 DIABETES MELLITUS
     Dosage: 10 U BID INJ
     Route: 042
     Dates: start: 20070925
  2. LANTUS [Suspect]
     Indication: TYPE 1 DIABETES MELLITUS
     Dosage: 24 U QD INJ
     Route: 042
  3. LANTUS [Suspect]
     Indication: TYPE 1 DIABETES MELLITUS
     Dosage: 26 U QD INJ
     Route: 042
  4. LANTUS [Suspect]
     Indication: TYPE 1 DIABETES MELLITUS
     Dosage: 28 U QD INJ
     Route: 042
  5. LANTUS [Suspect]
     Indication: TYPE 1 DIABETES MELLITUS
     Dosage: 30 U QD INJ
     Route: 042
  6. VITAMINS NOS (MVI) [Concomitant]

REACTIONS (4)
  - APHASIA [None]
  - BLOOD GLUCOSE INCREASED [None]
  - SHOCK HYPOGLYCAEMIC [None]
  - VISUAL DISTURBANCE [None]
